FAERS Safety Report 13020466 (Version 1)
Quarter: 2016Q4

REPORT INFORMATION
  Report Type: Report from Study
  Country: CA (occurrence: CA)
  Receive Date: 20161212
  Receipt Date: 20161212
  Transmission Date: 20170207
  Serious: Yes (Other)
  Sender: FDA-Public Use
  Company Number: CA-HLSUS-2016-CA-000302

PATIENT
  Sex: Female
  Weight: 80 kg

DRUGS (3)
  1. LITHIUM CARBONATE. [Concomitant]
     Active Substance: LITHIUM CARBONATE
  2. CLOZARIL [Suspect]
     Active Substance: CLOZAPINE
     Route: 048
     Dates: start: 20160618, end: 2016
  3. VALPROATE [Concomitant]
     Active Substance: VALPROIC ACID

REACTIONS (2)
  - Constipation [Unknown]
  - Cellulitis [Unknown]
